FAERS Safety Report 16011723 (Version 1)
Quarter: 2019Q1

REPORT INFORMATION
  Report Type: Spontaneous
  Country: US (occurrence: US)
  Receive Date: 20190227
  Receipt Date: 20190227
  Transmission Date: 20190418
  Serious: Yes (Other)
  Sender: FDA-Public Use
  Company Number: US-PFIZER INC-2019087786

PATIENT
  Age: 63 Year
  Sex: Female

DRUGS (2)
  1. PACLITAXEL. [Suspect]
     Active Substance: PACLITAXEL
     Dosage: 80 MG/M2, WEEKLY
     Dates: start: 20140409, end: 201407
  2. PACLITAXEL. [Suspect]
     Active Substance: PACLITAXEL
     Dosage: 80 MG/M2, CYCLIC (DAY ONE AND DAY 8 Q. 21 DAYS)
     Dates: start: 201407, end: 20140913

REACTIONS (3)
  - Fatigue [Unknown]
  - Neuropathy peripheral [Unknown]
  - Neoplasm progression [Unknown]

NARRATIVE: CASE EVENT DATE: 2014
